FAERS Safety Report 23228058 (Version 1)
Quarter: 2023Q4

REPORT INFORMATION
  Report Type: Spontaneous
  Country: FR (occurrence: FR)
  Receive Date: 20231125
  Receipt Date: 20231125
  Transmission Date: 20240109
  Serious: Yes (Hospitalization, Disabling, Other)
  Sender: FDA-Public Use
  Company Number: FR-TEVA-2023-FR-2949168

PATIENT
  Age: 51 Year
  Sex: Female

DRUGS (1)
  1. SULFAMETHOXAZOLE\TRIMETHOPRIM [Suspect]
     Active Substance: SULFAMETHOXAZOLE\TRIMETHOPRIM
     Indication: Salpingitis
     Route: 065
     Dates: start: 20180622

REACTIONS (14)
  - Toxic epidermal necrolysis [Unknown]
  - Pyrexia [Unknown]
  - Rash [Unknown]
  - Oxygen saturation abnormal [Unknown]
  - Respiratory distress [Unknown]
  - Post-traumatic stress disorder [Unknown]
  - Eye disorder [Unknown]
  - Skin disorder [Unknown]
  - Cognitive disorder [Unknown]
  - Disturbance in attention [Unknown]
  - Balance disorder [Unknown]
  - General physical health deterioration [Unknown]
  - Depression [Unknown]
  - Mechanical ventilation [Unknown]
